FAERS Safety Report 24556450 (Version 1)
Quarter: 2024Q4

REPORT INFORMATION
  Report Type: Spontaneous
  Country: US (occurrence: None)
  Receive Date: 20241027
  Receipt Date: 20241027
  Transmission Date: 20250114
  Serious: Yes (Hospitalization)
  Sender: Public
  Company Number: None

PATIENT
  Age: 65 Year
  Sex: Female

DRUGS (1)
  1. BRIMONIDINE [Suspect]
     Active Substance: BRIMONIDINE TARTRATE
     Dosage: 5 ML TWICE A DAY OPHTHALMIC
     Route: 047
     Dates: start: 20231029, end: 20240426

REACTIONS (7)
  - Somnolence [None]
  - Fatigue [None]
  - Skin disorder [None]
  - Peripheral swelling [None]
  - Peripheral swelling [None]
  - Swelling face [None]
  - Adverse reaction [None]

NARRATIVE: CASE EVENT DATE: 20240101
